FAERS Safety Report 13777171 (Version 1)
Quarter: 2017Q3

REPORT INFORMATION
  Report Type: Spontaneous
  Country: RU (occurrence: RU)
  Receive Date: 20170721
  Receipt Date: 20170721
  Transmission Date: 20171127
  Serious: Yes (Other)
  Sender: FDA-Public Use
  Company Number: RU-ASTRAZENECA-2017SE73795

PATIENT
  Age: 69 Year
  Sex: Male
  Weight: 85 kg

DRUGS (3)
  1. BRAL [Concomitant]
  2. ASPIRIN CARDIO [Concomitant]
     Active Substance: ASPIRIN
  3. CRESTOR [Suspect]
     Active Substance: ROSUVASTATIN CALCIUM
     Indication: ARTERIOSCLEROSIS
     Route: 048
     Dates: start: 201703

REACTIONS (5)
  - Appendicitis [Unknown]
  - Peritonitis [Recovered/Resolved]
  - Hypothermia [Unknown]
  - Stupor [Unknown]
  - Headache [Not Recovered/Not Resolved]

NARRATIVE: CASE EVENT DATE: 20170707
